FAERS Safety Report 6361830-2 (Version None)
Quarter: 2009Q3

REPORT INFORMATION
  Report Type: 
  Country: None (occurrence: None)
  Receive Date: 20090918
  Receipt Date: 20090914
  Transmission Date: 20100115
  Serious: Yes (Congenital Anomaly)
  Sender: FDA-Public Use
  Company Number: NL-JNJFOC-20090904252

PATIENT

DRUGS (2)
  1. FAMOTIDINE [Suspect]
  2. FAMOTIDINE [Suspect]
     Indication: DRUG EXPOSURE DURING PREGNANCY
     Dosage: EXPOSED IN WEEKS 0-4 OF PREGNANCY

REACTIONS (1)
  - CONGENITAL HAND MALFORMATION [None]
